FAERS Safety Report 5272635-8 (Version None)
Quarter: 2007Q1

REPORT INFORMATION
  Report Type: 
  Country: None (occurrence: None)
  Receive Date: 20070320
  Receipt Date: 20070320
  Transmission Date: 20070707
  Serious: Yes (Hospitalization)
  Sender: FDA-Public Use
  Company Number: None

PATIENT
  Sex: Female
  Weight: 61.6892 kg

DRUGS (2)
  1. BEVACIZUMAB 25 MG/ML GENETECH [Suspect]
     Indication: PANCREATIC CARCINOMA METASTATIC
     Dosage: 15MG/KG EVERY 3 WEEKS IV DRIP
     Route: 041
     Dates: start: 20070118, end: 20070207
  2. ERLOTINIB 150MG OSI PHARMACEUTICALS [Suspect]
     Indication: PANCREATIC CARCINOMA METASTATIC
     Dosage: 150 MG EVERY DAY PO
     Route: 048
     Dates: start: 20070118, end: 20070221

REACTIONS (2)
  - DEEP VEIN THROMBOSIS [None]
  - PULMONARY EMBOLISM [None]
